FAERS Safety Report 5396147-6 (Version None)
Quarter: 2007Q3

REPORT INFORMATION
  Report Type: 
  Country: None (occurrence: None)
  Receive Date: 20070725
  Receipt Date: 20070719
  Transmission Date: 20080115
  Serious: Yes (Hospitalization)
  Sender: FDA-Public Use
  Company Number: PHBS2007TR12237

PATIENT
  Age: 37 Year
  Sex: Female

DRUGS (2)
  1. MAPROTILINE HYDROCHLORIDE [Suspect]
     Indication: OVERDOSE
     Dosage: 700 MG
     Route: 048
  2. OLANZAPINE [Suspect]
     Indication: OVERDOSE
     Dosage: 560 MG
     Route: 048

REACTIONS (4)
  - GLASGOW COMA SCALE ABNORMAL [None]
  - INTUBATION [None]
  - OVERDOSE [None]
  - THERAPEUTIC AGENT TOXICITY [None]
